FAERS Safety Report 6862430-8 (Version None)
Quarter: 2010Q3

REPORT INFORMATION
  Report Type: 
  Country: None (occurrence: None)
  Receive Date: 20100719
  Receipt Date: 20100709
  Transmission Date: 20110219
  Serious: Yes (Hospitalization, Other)
  Sender: FDA-Public Use
  Company Number: 2010SP032401

PATIENT
  Age: 36 Year
  Sex: Male

DRUGS (8)
  1. MIRTAZAPINE [Suspect]
     Indication: DEPRESSION
     Dosage: 15 MG;QD;PO
     Route: 048
     Dates: start: 20100426, end: 20100502
  2. FLUVOXAMINE MALEATE [Concomitant]
  3. ALPRAZOLAM [Concomitant]
  4. ETIZOLAM [Concomitant]
  5. BROTIZOLAM [Concomitant]
  6. FLURAZEPAM HYDROCHLORIDE [Concomitant]
  7. DOGMATYL [Concomitant]
  8. ALLPURINOL [Concomitant]

REACTIONS (1)
  - RHABDOMYOLYSIS [None]
